FAERS Safety Report 13414562 (Version 1)
Quarter: 2017Q2

REPORT INFORMATION
  Report Type: Spontaneous
  Country: US (occurrence: US)
  Receive Date: 20170407
  Receipt Date: 20170407
  Transmission Date: 20170830
  Serious: Yes (Other)
  Sender: FDA-Public Use
  Company Number: PHHY2017US049359

PATIENT

DRUGS (3)
  1. GABAPENTIN. [Suspect]
     Active Substance: GABAPENTIN
     Indication: FOETAL EXPOSURE DURING PREGNANCY
     Dosage: 400-1200 MG, UNK (MATERNAL DOSE)
     Route: 064
  2. OXYCODONE [Suspect]
     Active Substance: OXYCODONE
     Indication: FOETAL EXPOSURE DURING PREGNANCY
     Route: 064
  3. HEROIN [Suspect]
     Active Substance: DIAMORPHINE
     Indication: FOETAL EXPOSURE DURING PREGNANCY
     Route: 064

REACTIONS (2)
  - Drug withdrawal syndrome neonatal [Unknown]
  - Foetal exposure during pregnancy [Unknown]
